FAERS Safety Report 5041389-2 (Version None)
Quarter: 2006Q2

REPORT INFORMATION
  Report Type: 
  Country: None (occurrence: None)
  Receive Date: 20060628
  Receipt Date: 20060619
  Transmission Date: 20061013
  Serious: Yes (Other)
  Sender: FDA-Public Use
  Company Number: 2006-06-1042

PATIENT
  Age: 39 Year
  Sex: Male
  Weight: 89 kg

DRUGS (3)
  1. VIRAFERONPEG [Suspect]
     Indication: HEPATITIS C
     Dosage: 150 UG QWK SUBCUTANEOUS
     Route: 058
     Dates: start: 20060227, end: 20060507
  2. REBETOL [Suspect]
     Indication: HEPATITIS C
     Dosage: 1000 MG QD ORAL
     Route: 048
     Dates: start: 20060227, end: 20060507
  3. DOLIPRANE [Concomitant]

REACTIONS (4)
  - CONJUNCTIVITIS [None]
  - DRUG INTOLERANCE [None]
  - HAEMATURIA [None]
  - HAEMOPTYSIS [None]
